FAERS Safety Report 4946196-4 (Version None)
Quarter: 2006Q1

REPORT INFORMATION
  Report Type: 
  Country: None (occurrence: None)
  Receive Date: 20060118
  Receipt Date: 20050505
  Transmission Date: 20060701
  Serious: Yes (Other)
  Sender: FDA-Public Use
  Company Number: US-JNJFOC-20050403911

PATIENT

DRUGS (1)
  1. DOXIL [Suspect]
     Dosage: 2 CYCLES

REACTIONS (1)
  - GASTROINTESTINAL HYPOMOTILITY [None]
